FAERS Safety Report 16323719 (Version 1)
Quarter: 2019Q2

REPORT INFORMATION
  Report Type: Spontaneous
  Country: US (occurrence: US)
  Receive Date: 20190517
  Receipt Date: 20190517
  Transmission Date: 20190711
  Serious: Yes (Other)
  Sender: FDA-Public Use
  Company Number: US-SUN PHARMACEUTICAL INDUSTRIES LTD-2019R1-208200

PATIENT
  Age: 63 Year
  Sex: Male

DRUGS (1)
  1. ASPIRIN. [Suspect]
     Active Substance: ASPIRIN
     Indication: PRODUCT USED FOR UNKNOWN INDICATION
     Dosage: UNK
     Route: 065

REACTIONS (6)
  - Acute myocardial infarction [Unknown]
  - Treatment noncompliance [Unknown]
  - Coronary artery occlusion [Unknown]
  - Hypersensitivity [Unknown]
  - Kounis syndrome [Unknown]
  - Urticaria [Unknown]
